FAERS Safety Report 8025709-2 (Version None)
Quarter: 2012Q1

REPORT INFORMATION
  Report Type: 
  Country: None (occurrence: None)
  Receive Date: 20120105
  Receipt Date: 20110104
  Transmission Date: 20120608
  Serious: No
  Sender: FDA-Public Use
  Company Number: US-ABBOTT-11P-163-0695421-00

PATIENT
  Sex: Female
  Weight: 70.37 kg

DRUGS (3)
  1. SYNTHROID [Suspect]
     Indication: HYPOTHYROIDISM
  2. SYNTHROID [Suspect]
  3. SYNTHROID [Suspect]
     Indication: HYPOTHYROIDISM
     Dates: start: 19700101

REACTIONS (5)
  - MOOD SWINGS [None]
  - FATIGUE [None]
  - HOT FLUSH [None]
  - DRUG INEFFECTIVE [None]
  - ASTHENIA [None]
